FAERS Safety Report 14069775 (Version 1)
Quarter: 2017Q4

REPORT INFORMATION
  Report Type: Spontaneous
  Country: JP (occurrence: JP)
  Receive Date: 20171010
  Receipt Date: 20171010
  Transmission Date: 20180321
  Serious: Yes (Hospitalization)
  Sender: FDA-Public Use
  Company Number: JP-JNJFOC-20170908400

PATIENT
  Age: 88 Year
  Sex: Female

DRUGS (2)
  1. TRAMCET [Suspect]
     Active Substance: ACETAMINOPHEN\TRAMADOL
     Indication: PAIN
     Route: 048
     Dates: start: 20170825, end: 20170831
  2. AZULENE [Concomitant]
     Active Substance: AZULENE
     Route: 047

REACTIONS (4)
  - Eyelid oedema [Recovered/Resolved]
  - Dementia [Unknown]
  - Lip oedema [Recovering/Resolving]
  - Pain [Unknown]

NARRATIVE: CASE EVENT DATE: 2017
